FAERS Safety Report 9826559 (Version 1)
Quarter: 2013Q4

REPORT INFORMATION
  Report Type: Spontaneous
  Country: US (occurrence: None)
  Receive Date: 20131120
  Receipt Date: 20131120
  Transmission Date: 20140711
  Serious: Yes (Other)
  Sender: FDA-Public Use
  Company Number: 1000050341

PATIENT
  Sex: Female

DRUGS (1)
  1. VIIBRYD (VILAZODONE HYDROCHLORIDE) [Suspect]
     Dates: start: 201211

REACTIONS (8)
  - Hallucination, auditory [None]
  - Initial insomnia [None]
  - Sleep paralysis [None]
  - Tremor [None]
  - Feeling abnormal [None]
  - Memory impairment [None]
  - Sleep apnoea syndrome [None]
  - Amnesia [None]
